FAERS Safety Report 10614610 (Version 2)
Quarter: 2014Q4

REPORT INFORMATION
  Report Type: Spontaneous
  Country: IT (occurrence: IT)
  Receive Date: 20141130
  Receipt Date: 20141130
  Transmission Date: 20150529
  Serious: Yes (Other)
  Sender: FDA-Public Use
  Company Number: IT-009507513-1407ITA008446

PATIENT
  Age: 69 Year
  Sex: Female

DRUGS (7)
  1. CARDIOASPIRIN [Concomitant]
     Active Substance: ASPIRIN
     Dosage: 100 MG, DAILY
     Route: 048
  2. NEO-LOTAN PLUS 100MG + 25MG COMPRESSE RIVESTITE CON FILM [Suspect]
     Active Substance: HYDROCHLOROTHIAZIDE\LOSARTAN POTASSIUM
     Indication: HYPERTENSION
     Dosage: 1 DOSE (UNIT) DAILY
     Route: 048
  3. ASACOL [Suspect]
     Active Substance: MESALAMINE
     Indication: COLITIS ULCERATIVE
     Dosage: 800 MG, DAILY
     Route: 048
  4. LITURSOL [Concomitant]
     Indication: DYSPEPSIA
     Dosage: UNK
     Route: 048
  5. SIVASTIN [Concomitant]
     Active Substance: SIMVASTATIN
     Indication: HYPERCHOLESTEROLAEMIA
     Dosage: UNK
     Route: 048
  6. LANSOX [Suspect]
     Active Substance: LANSOPRAZOLE
     Indication: GASTRITIS
     Dosage: 30 MG, DAILY
     Route: 048
  7. RIFACOL [Concomitant]
     Active Substance: RIFAXIMIN
     Indication: COLITIS ULCERATIVE
     Dosage: 600 MG, DAILY (TAKEN 6 DAYS EVERY MONTH)
     Route: 048
     Dates: start: 1994

REACTIONS (7)
  - Diarrhoea [Recovering/Resolving]
  - Blood glucose increased [None]
  - Aspartate aminotransferase increased [None]
  - Pyrexia [Recovering/Resolving]
  - Diarrhoea [None]
  - Enteritis [Recovering/Resolving]
  - Hypokalaemia [Recovering/Resolving]

NARRATIVE: CASE EVENT DATE: 20140701
